FAERS Safety Report 10560205 (Version 1)
Quarter: 2014Q4

REPORT INFORMATION
  Report Type: Spontaneous
  Country: US (occurrence: None)
  Receive Date: 20141031
  Receipt Date: 20141031
  Transmission Date: 20150529
  Serious: Yes (Life-Threatening)
  Sender: FDA-Public Use
  Company Number: None

PATIENT
  Age: 36 Year
  Sex: Male
  Weight: 104.7 kg

DRUGS (1)
  1. VARENICLINE [Suspect]
     Active Substance: VARENICLINE
     Indication: SMOKING CESSATION THERAPY
     Dates: start: 20140822, end: 20140925

REACTIONS (7)
  - Erectile dysfunction [None]
  - Post-traumatic stress disorder [None]
  - Hypertension [None]
  - Back pain [None]
  - Craniocerebral injury [None]
  - Muscle spasms [None]
  - Restless legs syndrome [None]

NARRATIVE: CASE EVENT DATE: 20140925
